FAERS Safety Report 5910086-0 (Version None)
Quarter: 2008Q4

REPORT INFORMATION
  Report Type: 
  Country: None (occurrence: None)
  Receive Date: 20081007
  Receipt Date: 20070905
  Transmission Date: 20090506
  Serious: No
  Sender: FDA-Public Use
  Company Number: US-ASTRAZENECA-2007UW21102

PATIENT
  Age: 65 Year
  Sex: Female
  Weight: 115.7 kg

DRUGS (4)
  1. ARIMIDEX [Suspect]
     Indication: BREAST CANCER
     Route: 048
     Dates: start: 20050101
  2. BLOOD PRESSURE MEDICATIONS [Concomitant]
  3. CHOLESTEROL MEDICATIONS [Concomitant]
  4. IBUPROFEN [Concomitant]

REACTIONS (4)
  - AMNESIA [None]
  - HOT FLUSH [None]
  - MUSCULOSKELETAL STIFFNESS [None]
  - NAUSEA [None]
